FAERS Safety Report 7238792-9 (Version None)
Quarter: 2011Q1

REPORT INFORMATION
  Report Type: 
  Country: None (occurrence: None)
  Receive Date: 20110121
  Receipt Date: 20110119
  Transmission Date: 20110831
  Serious: Yes (Hospitalization)
  Sender: FDA-Public Use
  Company Number: BR-ABBOTT-10P-020-0687485-00

PATIENT
  Sex: Female
  Weight: 80 kg

DRUGS (1)
  1. HUMIRA [Suspect]
     Indication: PSORIASIS
     Route: 058
     Dates: start: 20100723, end: 20101020

REACTIONS (7)
  - ASTHENIA [None]
  - IMMUNODEFICIENCY [None]
  - ILL-DEFINED DISORDER [None]
  - URINARY TRACT INFECTION [None]
  - NEPHRITIS [None]
  - ANAEMIA [None]
  - RENAL FAILURE [None]
